FAERS Safety Report 18108159 (Version 1)
Quarter: 2020Q3

REPORT INFORMATION
  Report Type: Spontaneous
  Country: US (occurrence: US)
  Receive Date: 20200803
  Receipt Date: 20200803
  Transmission Date: 20201103
  Serious: No
  Sender: FDA-Public Use
  Company Number: US-ASSERTIO THERAPEUTICS, INC.-US-2020DEP000014

PATIENT
  Sex: Male

DRUGS (1)
  1. ZIPSOR [Suspect]
     Active Substance: DICLOFENAC POTASSIUM
     Indication: BACK PAIN
     Dosage: 25 MG, QID
     Route: 048

REACTIONS (4)
  - Decreased appetite [Not Recovered/Not Resolved]
  - Erythema [Recovered/Resolved]
  - Peripheral swelling [Not Recovered/Not Resolved]
  - Abdominal distension [Not Recovered/Not Resolved]
